FAERS Safety Report 22738754 (Version 4)
Quarter: 2023Q4

REPORT INFORMATION
  Report Type: Spontaneous
  Country: BR (occurrence: BR)
  Receive Date: 20230721
  Receipt Date: 20231006
  Transmission Date: 20240109
  Serious: Yes (Hospitalization, Other)
  Sender: FDA-Public Use
  Company Number: BR-SA-SAC20230721000026

PATIENT
  Age: 1 Year
  Sex: Male

DRUGS (3)
  1. SABRIL [Suspect]
     Active Substance: VIGABATRIN
     Indication: Seizure
     Dosage: 1 DF, Q12H
     Route: 065
     Dates: start: 2022
  2. SABRIL [Suspect]
     Active Substance: VIGABATRIN
     Dosage: 1.5 DF, Q12H
     Route: 065
  3. CLONAZEPAM [Concomitant]
     Active Substance: CLONAZEPAM
     Indication: Seizure
     Route: 065

REACTIONS (6)
  - Skin discolouration [Recovering/Resolving]
  - Oxygen saturation decreased [Recovering/Resolving]
  - Bacterial infection [Unknown]
  - Seizure [Recovering/Resolving]
  - Respiratory disorder [Recovering/Resolving]
  - Product contamination [Recovering/Resolving]

NARRATIVE: CASE EVENT DATE: 20230101
